FAERS Safety Report 7070667-0 (Version None)
Quarter: 2010Q4

REPORT INFORMATION
  Report Type: 
  Country: None (occurrence: None)
  Receive Date: 20101029
  Receipt Date: 20101020
  Transmission Date: 20110411
  Serious: Yes (Other)
  Sender: FDA-Public Use
  Company Number: JP-PFIZER INC-2010133460

PATIENT
  Age: 52 Year
  Sex: Male

DRUGS (1)
  1. DETRUSITOL [Suspect]
     Dosage: 4 MG, 1X/DAY
     Route: 048
     Dates: start: 20101019

REACTIONS (1)
  - DRUG ERUPTION [None]
